FAERS Safety Report 12327541 (Version 1)
Quarter: 2016Q2

REPORT INFORMATION
  Report Type: Spontaneous
  Country: US (occurrence: US)
  Receive Date: 20160503
  Receipt Date: 20160503
  Transmission Date: 20160815
  Serious: Yes (Other)
  Sender: FDA-Public Use
  Company Number: US-AMGEN-USASP2016048661

PATIENT
  Age: 86 Year
  Sex: Female
  Weight: 54.43 kg

DRUGS (1)
  1. PROLIA [Suspect]
     Active Substance: DENOSUMAB
     Indication: OSTEOPOROSIS POSTMENOPAUSAL
     Dosage: 60 MG/ML, Q6MO
     Route: 058
     Dates: start: 20130829

REACTIONS (7)
  - Bone pain [Unknown]
  - Coccydynia [Recovered/Resolved]
  - Inflammation [Unknown]
  - Arthralgia [Recovered/Resolved]
  - Pain in extremity [Recovered/Resolved]
  - Treatment failure [Unknown]
  - Myalgia [Unknown]

NARRATIVE: CASE EVENT DATE: 20160413
